FAERS Safety Report 9322799 (Version 3)
Quarter: 2014Q1

REPORT INFORMATION
  Report Type: Report from Study
  Country: GB (occurrence: GB)
  Receive Date: 20130601
  Receipt Date: 20140114
  Transmission Date: 20141002
  Serious: Yes (Death)
  Sender: FDA-Public Use
  Company Number: GB-ROCHE-1229198

PATIENT
  Age: 85 Year
  Sex: Female

DRUGS (8)
  1. RANIBIZUMAB [Suspect]
     Indication: PRODUCT USED FOR UNKNOWN INDICATION
     Route: 050
     Dates: start: 20081126
  2. RANIBIZUMAB [Suspect]
     Route: 050
     Dates: start: 20100313, end: 20100313
  3. RAMIPRIL [Concomitant]
  4. FUROSEMIDE [Concomitant]
  5. ASPIRIN [Concomitant]
  6. CLOPIDOGREL [Concomitant]
  7. BISOPROLOL [Concomitant]
  8. ADCAL-D3 [Concomitant]

REACTIONS (2)
  - Cardiac failure [Fatal]
  - Atrial fibrillation [Fatal]
